FAERS Safety Report 8256182-7 (Version None)
Quarter: 2012Q2

REPORT INFORMATION
  Report Type: 
  Country: None (occurrence: None)
  Receive Date: 20120403
  Receipt Date: 20120328
  Transmission Date: 20120825
  Serious: Yes (Other)
  Sender: FDA-Public Use
  Company Number: US-PFIZER INC-2012080007

PATIENT
  Sex: Female
  Weight: 88.889 kg

DRUGS (4)
  1. EFFEXOR XR [Suspect]
     Indication: BIPOLAR DISORDER
     Dosage: 75 MG, 3X/DAY
     Route: 048
  2. CLOZAPINE [Interacting]
     Indication: ANXIETY
     Dosage: UNK
     Route: 048
     Dates: start: 20120101
  3. RIFAMYCIN [Interacting]
     Indication: SKIN DISORDER
     Dosage: 333 MG, DAILY
     Dates: start: 20120101
  4. LAMISIL [Interacting]
     Indication: FUNGAL INFECTION
     Dosage: 250 MG, DAILY
     Route: 048
     Dates: start: 20120101

REACTIONS (6)
  - INTRAOCULAR PRESSURE INCREASED [None]
  - DIPLOPIA [None]
  - VISUAL IMPAIRMENT [None]
  - INCORRECT DOSE ADMINISTERED [None]
  - EYE DISORDER [None]
  - DRUG INTERACTION [None]
